FAERS Safety Report 6871216-X (Version None)
Quarter: 2010Q3

REPORT INFORMATION
  Report Type: 
  Country: None (occurrence: None)
  Receive Date: 20100723
  Receipt Date: 20100714
  Transmission Date: 20110219
  Serious: Yes (Other)
  Sender: FDA-Public Use
  Company Number: GB-PFIZER INC-2010002492

PATIENT
  Age: 14 Year
  Sex: Female

DRUGS (11)
  1. DEPO-PROVERA [Suspect]
     Indication: CONTRACEPTION
     Dosage: UNK, 1ST INJECTION
     Dates: start: 20090623
  2. DEPO-PROVERA [Suspect]
     Dosage: UNK, 2ND INJECTION
     Dates: start: 20090911
  3. CETIRIZINE HCL [Suspect]
     Indication: ACARODERMATITIS
     Dosage: 10 MG, 1X/DAY
     Dates: start: 20090917, end: 20091013
  4. CETIRIZINE HCL [Suspect]
     Indication: SEASONAL ALLERGY
  5. CERVARIX [Suspect]
     Indication: PROPHYLAXIS
     Dosage: 1 DF, SINGLE
     Route: 030
     Dates: start: 20091008, end: 20091008
  6. MALATHION [Suspect]
     Indication: ACARODERMATITIS
     Dosage: UNK
     Dates: start: 20090623
  7. MALATHION [Suspect]
     Dosage: UNK
     Route: 061
     Dates: start: 20090806, end: 20090813
  8. PERMETHRIN [Suspect]
     Indication: ACARODERMATITIS
     Dosage: UNK
     Route: 061
     Dates: start: 20090917, end: 20090924
  9. FLUCLOXACILLIN [Suspect]
     Indication: ACARODERMATITIS
     Dosage: 250 MG, 4X/DAY
     Dates: start: 20090710
  10. FUCIDIN H [Suspect]
     Indication: ACARODERMATITIS
     Dosage: UNK
     Dates: start: 20090710
  11. TRIMETHOPRIM [Suspect]
     Indication: URINARY TRACT INFECTION
     Dosage: 200 MG, 2X/DAY
     Dates: start: 20090604

REACTIONS (2)
  - DRUG INEFFECTIVE [None]
  - UNINTENDED PREGNANCY [None]
